FAERS Safety Report 16074562 (Version 1)
Quarter: 2019Q1

REPORT INFORMATION
  Report Type: Spontaneous
  Country: US (occurrence: US)
  Receive Date: 20190314
  Receipt Date: 20190314
  Transmission Date: 20190418
  Serious: Yes (Hospitalization)
  Sender: FDA-Public Use
  Company Number: US-MYLANLABS-2019M1023422

PATIENT
  Age: 74 Year
  Sex: Male

DRUGS (10)
  1. MORPHINE [Suspect]
     Active Substance: MORPHINE
     Indication: BACK PAIN
     Dosage: ADMINISTERED AS NEEDED; IMMEDIATE RELEASE FORMULATION
     Route: 048
  2. PREGABALIN. [Concomitant]
     Active Substance: PREGABALIN
     Dosage: ADMINISTERED WITH LUNCH
     Route: 065
  3. HYDROMORPHONE [Concomitant]
     Active Substance: HYDROMORPHONE
     Indication: DRUG WITHDRAWAL SYNDROME
     Dosage: PER PUSH DOSE 6-MINUTE LOCKOUT TIME, NO BASAL INFUSION, AND A MAXIMUM OF 4 MG/H; PATIENT-CONTROLL...
     Route: 040
  4. KADIAN [Suspect]
     Active Substance: MORPHINE SULFATE
     Indication: BACK PAIN
     Dosage: EXTENDED-RELEASE FORMULATION
     Route: 048
  5. CLONIDINE. [Concomitant]
     Active Substance: CLONIDINE
     Indication: DRUG WITHDRAWAL SYNDROME
     Route: 065
  6. KETAMINE [Suspect]
     Active Substance: KETAMINE
     Indication: DRUG WITHDRAWAL SYNDROME
     Dosage: 10 MILLIGRAM, QH
     Route: 050
  7. PREGABALIN. [Concomitant]
     Active Substance: PREGABALIN
     Indication: BACK PAIN
     Dosage: 100 MILLIGRAM
     Route: 065
  8. DICLOFENAC [Concomitant]
     Active Substance: DICLOFENAC
     Indication: BACK PAIN
     Dosage: APPLIED AS NEEDED TO THE BUTTOCKS
     Route: 061
  9. ACETAMINOPHEN. [Concomitant]
     Active Substance: ACETAMINOPHEN
     Indication: DRUG WITHDRAWAL SYNDROME
     Dosage: ADMINISTERED AROUND THE CLOCK
     Route: 065
  10. HYDROMORPHONE [Concomitant]
     Active Substance: HYDROMORPHONE
     Dosage: 0.8 MILLIGRAM, Q2H
     Route: 040

REACTIONS (7)
  - Disturbance in attention [Unknown]
  - Drug withdrawal syndrome [Recovered/Resolved]
  - Diarrhoea [Recovered/Resolved]
  - Tremor [Recovered/Resolved]
  - Nausea [Recovered/Resolved]
  - Sedation [Recovered/Resolved]
  - Hallucination [Recovered/Resolved]
